FAERS Safety Report 13556583 (Version 1)
Quarter: 2017Q2

REPORT INFORMATION
  Report Type: Spontaneous
  Country: US (occurrence: US)
  Receive Date: 20170517
  Receipt Date: 20170517
  Transmission Date: 20170830
  Serious: No
  Sender: FDA-Public Use
  Company Number: None

PATIENT
  Age: 72 Year
  Sex: Male
  Weight: 113.5 kg

DRUGS (14)
  1. FUROSEMIDE. [Concomitant]
     Active Substance: FUROSEMIDE
  2. CYCLOBENZAPRINE. [Concomitant]
     Active Substance: CYCLOBENZAPRINE
  3. GABAPENTIN. [Concomitant]
     Active Substance: GABAPENTIN
  4. FLECANIDE [Concomitant]
     Active Substance: FLECAINIDE
  5. ATORVASTATIN [Concomitant]
     Active Substance: ATORVASTATIN
  6. METOPROLOL. [Concomitant]
     Active Substance: METOPROLOL
  7. WARFARIN [Concomitant]
     Active Substance: WARFARIN
  8. AVODART [Concomitant]
     Active Substance: DUTASTERIDE
  9. VENTOLIN HFA METER [Concomitant]
  10. IPRATROPLUM 0.5MG/ALBUTUROL 2.5MG CNPH) 3ML [Suspect]
     Active Substance: ALBUTEROL SULFATE\IPRATROPIUM BROMIDE
     Indication: CHRONIC OBSTRUCTIVE PULMONARY DISEASE
     Dosage: DOSE - 1 VIAL?FREQUENCY - 6 TIMES DAILY?ROUTE - ORAL - NEBULIZER
     Route: 048
     Dates: start: 20170426, end: 20170426
  11. VICODIN [Concomitant]
     Active Substance: ACETAMINOPHEN\HYDROCODONE BITARTRATE
  12. DIAZEPAM. [Concomitant]
     Active Substance: DIAZEPAM
  13. DOXAZOSIN [Concomitant]
     Active Substance: DOXAZOSIN\DOXAZOSIN MESYLATE
  14. PRIMIDONE. [Concomitant]
     Active Substance: PRIMIDONE

REACTIONS (3)
  - Pharyngeal oedema [None]
  - Decreased appetite [None]
  - Tremor [None]

NARRATIVE: CASE EVENT DATE: 20170426
